FAERS Safety Report 24713733 (Version 1)
Quarter: 2024Q4

REPORT INFORMATION
  Report Type: Report from Study
  Country: US (occurrence: US)
  Receive Date: 20241209
  Receipt Date: 20241209
  Transmission Date: 20250115
  Serious: Yes (Other)
  Sender: ABBVIE
  Company Number: US-ABBVIE-6034471

PATIENT
  Age: 62 Year
  Sex: Female

DRUGS (1)
  1. SKYRIZI [Suspect]
     Active Substance: RISANKIZUMAB-RZAA
     Indication: Psoriasis
     Route: 058
     Dates: start: 20241017

REACTIONS (3)
  - Peptic ulcer haemorrhage [Recovering/Resolving]
  - Neck pain [Unknown]
  - Spinal X-ray abnormal [Unknown]

NARRATIVE: CASE EVENT DATE: 20240101
